FAERS Safety Report 9631551 (Version 3)
Quarter: 2015Q1

REPORT INFORMATION
  Report Type: Report from Study
  Country: DE (occurrence: DE)
  Receive Date: 20131018
  Receipt Date: 20150130
  Transmission Date: 20150721
  Serious: Yes (Death, Life-Threatening, Hospitalization, Disabling)
  Sender: FDA-Public Use
  Company Number: DE-PFIZER INC-2013294930

PATIENT
  Age: 56 Year
  Sex: Male

DRUGS (20)
  1. LEVETIRACETAM. [Suspect]
     Active Substance: LEVETIRACETAM
     Dosage: UNK
  2. FORTECORTIN [Concomitant]
     Active Substance: DEXAMETHASONE
     Dosage: 4 MG, UNK
     Dates: start: 20101213
  3. DEXAMETHASONE. [Concomitant]
     Active Substance: DEXAMETHASONE
     Dosage: 12 MG, UNK
     Dates: start: 20100820, end: 20100820
  4. DEXAMETHASONE. [Concomitant]
     Active Substance: DEXAMETHASONE
     Dosage: 16 MG, UNK
     Dates: start: 20110413, end: 20110428
  5. ONDANSETRON [Concomitant]
     Active Substance: ONDANSETRON
     Dosage: 4 MG, UNK
     Dates: start: 20110316, end: 20110418
  6. TEMOZOLOMIDE. [Suspect]
     Active Substance: TEMOZOLOMIDE
     Indication: GLIOBLASTOMA
     Dosage: DATE OF LAST DOSE PRIOR TO SAE 24 OCT 2010 (150 MG, DAILY)
     Route: 048
     Dates: start: 20100913
  7. FORTECORTIN [Concomitant]
     Active Substance: DEXAMETHASONE
     Dosage: 6 MG, UNK
     Dates: start: 20110411
  8. SOBELIN [Concomitant]
     Active Substance: CLINDAMYCIN HYDROCHLORIDE
     Dosage: 1200 MG, UNK
     Dates: start: 20100919, end: 20100926
  9. DEXAMETHASONE. [Concomitant]
     Active Substance: DEXAMETHASONE
     Dosage: 4 MG, UNK
     Dates: start: 20100823, end: 20100824
  10. BEVACIZUMAB [Suspect]
     Active Substance: BEVACIZUMAB
     Indication: GLIOBLASTOMA
     Dosage: LAST DOSE PRIOR TO SAE ON 12APR2011 (820 MG, 2 IN 1 WK)
     Route: 042
  11. LORAZEPAM. [Concomitant]
     Active Substance: LORAZEPAM
     Dosage: 0.5 MG, UNK
     Dates: start: 20100910, end: 20110418
  12. DEXAMETHASONE. [Concomitant]
     Active Substance: DEXAMETHASONE
     Dosage: 6 MG, UNK
     Dates: start: 20100821, end: 20100822
  13. PANTOPRAZOLE [Concomitant]
     Active Substance: PANTOPRAZOLE SODIUM
     Dosage: 0-0-1, UNK
     Dates: start: 20100820, end: 20100907
  14. FORTECORTIN [Concomitant]
     Active Substance: DEXAMETHASONE
     Dosage: 1-1-1, UNK
     Dates: start: 20100820
  15. HYPERICUM PERFORATUM [Concomitant]
     Active Substance: HYPERICUM PERFORATUM
     Dosage: 0-0-1, UNK
     Dates: start: 20100920
  16. FRAXIPARIN [Concomitant]
     Active Substance: NADROPARIN CALCIUM
     Dosage: 0.3 ML, UNK
     Dates: start: 20100820, end: 20100907
  17. DEXAMETHASONE. [Concomitant]
     Active Substance: DEXAMETHASONE
     Dosage: 4 MG, UNK
     Dates: start: 20101213, end: 20110105
  18. DEXAMETHASONE. [Concomitant]
     Active Substance: DEXAMETHASONE
     Dosage: 8 MG, UNK
     Dates: start: 20110429, end: 20110526
  19. CAMPTO [Suspect]
     Active Substance: IRINOTECAN
     Indication: GLIOBLASTOMA
     Dosage: LAST DOSE PRIOR TO SAE ON 12APR2011 (245 MG, 2 IN 1 WK)
     Route: 042
  20. BAYOTENSIN [Concomitant]
     Dosage: 5 MG, UNK
     Dates: start: 20110302, end: 20110302

REACTIONS (2)
  - General physical health deterioration [Fatal]
  - Neurological decompensation [Recovered/Resolved with Sequelae]

NARRATIVE: CASE EVENT DATE: 20110413
